FAERS Safety Report 24444144 (Version 2)
Quarter: 2024Q4

REPORT INFORMATION
  Report Type: Report from Study
  Country: US (occurrence: US)
  Receive Date: 20241016
  Receipt Date: 20241017
  Transmission Date: 20250115
  Serious: No
  Sender: ROCHE
  Company Number: US-ROCHE-2550028

PATIENT
  Age: 60 Year
  Sex: Female

DRUGS (4)
  1. RITUXAN [Suspect]
     Active Substance: RITUXIMAB
     Indication: Immune thrombocytopenia
     Dosage: ONGOING: YES?500 MG SINGLE-USE VIAL
     Route: 041
     Dates: start: 20200310, end: 20210310
  2. RITUXAN [Suspect]
     Active Substance: RITUXIMAB
     Indication: Thrombotic microangiopathy
     Dosage: 668 MG INTRAVENOUSLY WEEKLY FOR FOUR DOSES
     Route: 042
  3. RITUXAN [Suspect]
     Active Substance: RITUXIMAB
     Indication: Cerebral infarction
     Dosage: EVERY 3 MONTHS/84 DAYS
     Route: 042
  4. RITUXAN [Suspect]
     Active Substance: RITUXIMAB
     Indication: Thrombotic microangiopathy

REACTIONS (2)
  - Off label use [Unknown]
  - No adverse event [Unknown]
